FAERS Safety Report 17429547 (Version 2)
Quarter: 2020Q1

REPORT INFORMATION
  Report Type: Report from Study
  Country: US (occurrence: US)
  Receive Date: 20200218
  Receipt Date: 20200218
  Transmission Date: 20200409
  Serious: Yes (Life-Threatening, Hospitalization)
  Sender: FDA-Public Use
  Company Number: US-PFIZER INC-2020005730

PATIENT
  Age: 2 Year
  Sex: Female
  Weight: 10.8 kg

DRUGS (14)
  1. LIDOCAINE/PRILOCAINE [Concomitant]
     Active Substance: LIDOCAINE\PRILOCAINE
     Indication: INFUSION SITE PAIN
     Dosage: UNK
  2. ATROPINE. [Concomitant]
     Active Substance: ATROPINE
     Indication: CHEMOTHERAPY
     Dosage: 0.116 MG, QD
     Route: 042
     Dates: start: 20191219, end: 20191223
  3. CHOLECALCIFEROL [Concomitant]
     Active Substance: CHOLECALCIFEROL
     Indication: VITAMIN D DEFICIENCY
     Dosage: 400 U, QD
     Route: 048
  4. LOPERAMIDE [Concomitant]
     Active Substance: LOPERAMIDE
     Indication: PROPHYLAXIS AGAINST DIARRHOEA
     Dosage: 1.01 MG, PRN
     Route: 048
     Dates: start: 20191218
  5. DIPHENHYDRAMINE. [Concomitant]
     Active Substance: DIPHENHYDRAMINE
     Indication: GASTROINTESTINAL TUBE INSERTION
     Dosage: 11.5 MG, ONCE
     Route: 042
     Dates: start: 20191223, end: 20191223
  6. EMLA [Concomitant]
     Active Substance: LIDOCAINE\PRILOCAINE
     Indication: PAIN PROPHYLAXIS
     Dosage: 1 APPLICATION, PRN
     Route: 061
     Dates: start: 2018
  7. IRINOTECAN HCL [Suspect]
     Active Substance: IRINOTECAN HYDROCHLORIDE
     Indication: HEPATOBLASTOMA
     Dosage: 26 MG, ONCE DAILY (DAYS 1-5 OF 21 DAY CYCLE)
     Route: 041
     Dates: start: 20191219, end: 20191223
  8. ACETAMINOPHEN. [Concomitant]
     Active Substance: ACETAMINOPHEN
     Dosage: UNK
  9. ONDANSETRON [Concomitant]
     Active Substance: ONDANSETRON
     Indication: PROPHYLAXIS OF NAUSEA AND VOMITING
     Dosage: 5 MG, QD
     Route: 042
     Dates: start: 20191219, end: 20191223
  10. CEFIXIME. [Concomitant]
     Active Substance: CEFIXIME
     Indication: ANTIBIOTIC PROPHYLAXIS
     Dosage: 88 MG, QD
     Route: 048
     Dates: start: 20191217, end: 20191226
  11. PALBOCICLIB [Suspect]
     Active Substance: PALBOCICLIB
     Indication: HEPATOBLASTOMA
     Dosage: 40 MG, ONCE DAILY (DAYS 1-14 OF 21 DAY CYCLE)
     Route: 048
     Dates: start: 20191219, end: 20200101
  12. TEMOZOLOMIDE. [Suspect]
     Active Substance: TEMOZOLOMIDE
     Indication: HEPATOBLASTOMA
     Dosage: 50 MG, ONCE DAILY (DAYS 1-5 OF 21 DAY CYCLE)
     Route: 041
     Dates: start: 20191219, end: 20191223
  13. SODIUM CHLORIDE. [Concomitant]
     Active Substance: SODIUM CHLORIDE
     Indication: NASAL CONGESTION
     Dosage: UNK
  14. CETIRIZINE [Concomitant]
     Active Substance: CETIRIZINE HYDROCHLORIDE
     Indication: NASAL CONGESTION
     Dosage: UNK

REACTIONS (2)
  - Hypotension [Recovered/Resolved]
  - Febrile neutropenia [Recovered/Resolved]

NARRATIVE: CASE EVENT DATE: 20200103
